FAERS Safety Report 24602376 (Version 2)
Quarter: 2024Q4

REPORT INFORMATION
  Report Type: Spontaneous
  Country: US (occurrence: US)
  Receive Date: 20241111
  Receipt Date: 20241126
  Transmission Date: 20250115
  Serious: No
  Sender: ASTELLAS
  Company Number: US-ASTELLAS-2024-AER-016648

PATIENT
  Age: 72 Year
  Sex: Female

DRUGS (1)
  1. VEOZAH [Suspect]
     Active Substance: FEZOLINETANT
     Indication: Menopausal symptoms
     Dosage: TOOK 12 TABLETS?AT NIGHT
     Route: 048
     Dates: start: 20240201, end: 20240213

REACTIONS (8)
  - Seasonal allergy [Recovered/Resolved]
  - Rhinorrhoea [Recovered/Resolved]
  - Pain [Recovered/Resolved]
  - Musculoskeletal stiffness [Recovered/Resolved]
  - Chills [Recovered/Resolved]
  - Headache [Recovered/Resolved]
  - Urticaria [Recovered/Resolved]
  - Condition aggravated [Recovered/Resolved]

NARRATIVE: CASE EVENT DATE: 20240205
